FAERS Safety Report 22075440 (Version 1)
Quarter: 2023Q1

REPORT INFORMATION
  Report Type: Spontaneous
  Country: US (occurrence: None)
  Receive Date: 20230307
  Receipt Date: 20230307
  Transmission Date: 20230418
  Serious: No
  Sender: FDA-Public Use
  Company Number: None

PATIENT
  Sex: Female

DRUGS (1)
  1. TASIGNA [Suspect]
     Active Substance: NILOTINIB
     Indication: Myeloid leukaemia
     Dosage: 300MG BID PO?
     Route: 048
     Dates: start: 202301

REACTIONS (4)
  - Fatigue [None]
  - Loss of personal independence in daily activities [None]
  - Nausea [None]
  - Hypophagia [None]
